FAERS Safety Report 10056997 (Version 1)
Quarter: 2014Q2

REPORT INFORMATION
  Report Type: Spontaneous
  Country: US (occurrence: US)
  Receive Date: 20140403
  Receipt Date: 20140403
  Transmission Date: 20141212
  Serious: No
  Sender: FDA-Public Use
  Company Number: US-PFIZER INC-2014092140

PATIENT
  Age: 67 Year
  Sex: Female
  Weight: 88 kg

DRUGS (6)
  1. GABAPENTIN [Suspect]
     Indication: NERVE INJURY
     Dosage: 1200 MG, 3X/DAY
     Route: 048
  2. GABAPENTIN [Suspect]
     Indication: HERPES ZOSTER
  3. PRILOSEC [Concomitant]
     Dosage: UNK, 1X/DAY
  4. LORATADINE [Concomitant]
     Dosage: UNK
  5. ZANTAC [Concomitant]
     Dosage: UNK
  6. BACTRIM DS [Concomitant]
     Dosage: UNK

REACTIONS (2)
  - Pain [Unknown]
  - Drug ineffective [Unknown]
